FAERS Safety Report 15882760 (Version 2)
Quarter: 2019Q1

REPORT INFORMATION
  Report Type: Report from Study
  Country: DE (occurrence: DE)
  Receive Date: 20190129
  Receipt Date: 20190207
  Transmission Date: 20190417
  Serious: Yes (Other)
  Sender: FDA-Public Use
  Company Number: DE-ROCHE-2037287

PATIENT
  Age: 49 Year
  Sex: Female

DRUGS (5)
  1. ABRAXANE [Suspect]
     Active Substance: PACLITAXEL
     Indication: BREAST CANCER METASTATIC
     Dosage: ON DAY 1, DAY 8 OF A CYCLE OF 22 DAYS
     Route: 042
     Dates: start: 20170809
  2. PERTUZUMAB. [Suspect]
     Active Substance: PERTUZUMAB
     Indication: BREAST CANCER METASTATIC
     Route: 042
     Dates: start: 20170809
  3. ABRAXANE [Suspect]
     Active Substance: PACLITAXEL
     Route: 042
     Dates: start: 20180723
  4. TRASTUZUMAB. [Suspect]
     Active Substance: TRASTUZUMAB
     Indication: BREAST CANCER METASTATIC
     Route: 042
     Dates: start: 20170809
  5. DOCETAXEL. [Suspect]
     Active Substance: DOCETAXEL
     Indication: PRODUCT USED FOR UNKNOWN INDICATION
     Route: 065

REACTIONS (10)
  - Hepatic failure [Not Recovered/Not Resolved]
  - Insomnia [Recovered/Resolved]
  - Arthralgia [Unknown]
  - Diarrhoea [Recovered/Resolved]
  - Peripheral sensory neuropathy [Recovered/Resolved with Sequelae]
  - Rhinitis [Not Recovered/Not Resolved]
  - Transaminases abnormal [Unknown]
  - Dysgeusia [Unknown]
  - Stomatitis [Recovered/Resolved with Sequelae]
  - Myalgia [Unknown]

NARRATIVE: CASE EVENT DATE: 20170830
